FAERS Safety Report 5477799-9 (Version None)
Quarter: 2007Q4

REPORT INFORMATION
  Report Type: 
  Country: None (occurrence: None)
  Receive Date: 20071003
  Receipt Date: 20071003
  Transmission Date: 20080405
  Serious: No
  Sender: FDA-Public Use
  Company Number: None

PATIENT
  Age: 63 Year
  Sex: Female

DRUGS (1)
  1. FOSAMAX [Suspect]
     Dosage: ORAL
     Route: 048
     Dates: start: 20021101, end: 20060412

REACTIONS (1)
  - REFUSAL OF TREATMENT BY PATIENT [None]
